FAERS Safety Report 17039180 (Version 4)
Quarter: 2020Q1

REPORT INFORMATION
  Report Type: Spontaneous
  Country: US (occurrence: US)
  Receive Date: 20191115
  Receipt Date: 20200310
  Transmission Date: 20200409
  Serious: Yes (Hospitalization, Other)
  Sender: FDA-Public Use
  Company Number: US-SA-2019SA312503

PATIENT
  Age: 37 Year
  Sex: Female
  Weight: 106.59 kg

DRUGS (22)
  1. DUPIXENT [Suspect]
     Active Substance: DUPILUMAB
     Indication: ASTHMA
  2. VENTOLIN HFA [Concomitant]
     Active Substance: ALBUTEROL SULFATE
  3. CYCLOBENZAPRINE HCL [Concomitant]
     Active Substance: CYCLOBENZAPRINE HYDROCHLORIDE
  4. XOPENEX [Concomitant]
     Active Substance: LEVALBUTEROL HYDROCHLORIDE
  5. DUPIXENT [Suspect]
     Active Substance: DUPILUMAB
     Indication: ASTHMA
     Dosage: 300 MG, QOW
     Route: 058
     Dates: start: 20191024
  6. DUPIXENT [Suspect]
     Active Substance: DUPILUMAB
     Indication: CUTANEOUS LUPUS ERYTHEMATOSUS
  7. LIDO PRILO CAINE PACK [Concomitant]
  8. BREO ELLIPTA [Concomitant]
     Active Substance: FLUTICASONE FUROATE\VILANTEROL TRIFENATATE
  9. ZOLPIDEM TARTRATE. [Concomitant]
     Active Substance: ZOLPIDEM TARTRATE
     Dosage: UNK
  10. CARAFATE [Concomitant]
     Active Substance: SUCRALFATE
  11. PROBIOTICS NOS [Concomitant]
     Active Substance: PROBIOTICS NOS
  12. ONDANSETRON HCL [Concomitant]
     Active Substance: ONDANSETRON HYDROCHLORIDE
  13. MS CONTIN [Concomitant]
     Active Substance: MORPHINE SULFATE
  14. BENLYSTA [Concomitant]
     Active Substance: BELIMUMAB
  15. AMILORIDE HCL [Concomitant]
     Active Substance: AMILORIDE HYDROCHLORIDE
  16. TYLENOL [Concomitant]
     Active Substance: ACETAMINOPHEN
  17. NYSTATIN. [Concomitant]
     Active Substance: NYSTATIN
  18. OXYCODONE HYDROCHLORIDE. [Concomitant]
     Active Substance: OXYCODONE HYDROCHLORIDE
  19. HYDROXYZINE PAMOATE. [Concomitant]
     Active Substance: HYDROXYZINE PAMOATE
  20. XANAX [Concomitant]
     Active Substance: ALPRAZOLAM
  21. DUPIXENT [Suspect]
     Active Substance: DUPILUMAB
     Indication: HYPOXIA
  22. DICYCLOMINE HCL [Concomitant]
     Active Substance: DICYCLOMINE HYDROCHLORIDE

REACTIONS (10)
  - Confusional state [Unknown]
  - Product use in unapproved indication [Unknown]
  - Lupus pleurisy [Unknown]
  - Pyrexia [Unknown]
  - Product dose omission [Unknown]
  - Infection [Unknown]
  - Asthma [Unknown]
  - Malaise [Unknown]
  - Injection site pain [Unknown]
  - Tooth disorder [Unknown]

NARRATIVE: CASE EVENT DATE: 201911
